FAERS Safety Report 6715654-4 (Version None)
Quarter: 2010Q2

REPORT INFORMATION
  Report Type: 
  Country: None (occurrence: None)
  Receive Date: 20100507
  Receipt Date: 20100429
  Transmission Date: 20101027
  Serious: Yes (Hospitalization)
  Sender: FDA-Public Use
  Company Number: CZ-ROCHE-700546

PATIENT
  Sex: Male

DRUGS (4)
  1. CAPECITABINE [Suspect]
     Route: 065
     Dates: start: 20091124, end: 20100105
  2. BEVACIZUMAB [Suspect]
     Dosage: DOSE: 7.5 MG/KG
     Route: 065
     Dates: start: 20091124, end: 20100105
  3. BEVACIZUMAB [Suspect]
     Dosage: DOSE: 7.5 MG/KG
     Route: 065
     Dates: start: 20100125
  4. OXALIPLATIN [Suspect]
     Route: 065
     Dates: start: 20091124, end: 20100105

REACTIONS (3)
  - DEHYDRATION [None]
  - ENTEROCOLITIS [None]
  - SUBILEUS [None]
